FAERS Safety Report 9486782 (Version 2)
Quarter: 2014Q1

REPORT INFORMATION
  Report Type: Spontaneous
  Country: US (occurrence: US)
  Receive Date: 20130829
  Receipt Date: 20140303
  Transmission Date: 20141002
  Serious: Yes (Hospitalization)
  Sender: FDA-Public Use
  Company Number: US-B.I. PHARMACEUTICALS,INC./RIDGEFIELD-2013-BI-26380BP

PATIENT
  Sex: Male
  Weight: 95.25 kg

DRUGS (17)
  1. PRADAXA [Suspect]
     Indication: ATRIAL FIBRILLATION
     Dosage: 300 MG
     Route: 048
     Dates: start: 20110428, end: 20111111
  2. SINGULAIR [Concomitant]
     Dosage: 10 MG
     Route: 048
     Dates: start: 2010
  3. ZESTRIL [Concomitant]
     Dosage: 20 MG
     Route: 048
     Dates: start: 2010
  4. B COMPLEX [Concomitant]
     Route: 048
  5. POTASSIUM GLUCONATE [Concomitant]
     Dosage: 595 MG
     Route: 048
  6. CENTRUM SILVER [Concomitant]
     Route: 048
  7. XOPENEX [Concomitant]
     Route: 055
  8. KRILL OIL [Concomitant]
     Dosage: 1000 MG
     Route: 048
  9. ASPIRIN [Concomitant]
     Dosage: 81 MG
     Route: 048
     Dates: start: 201111
  10. PROVENTIL [Concomitant]
     Route: 055
  11. ADVAIR DISKUS [Concomitant]
     Route: 055
     Dates: start: 2011
  12. FOLVITE [Concomitant]
     Dosage: 1 MG
     Route: 048
     Dates: start: 2010
  13. FLONASE [Concomitant]
     Route: 065
  14. ZOCOR [Concomitant]
     Dosage: 20 MG
     Route: 048
     Dates: start: 2010
  15. SPIRIVA [Concomitant]
     Dosage: 18 MCG
     Route: 055
     Dates: start: 2011
  16. CARDIZEM CD [Concomitant]
     Dosage: 240 MG
     Route: 048
     Dates: start: 201104
  17. DELTASONE [Concomitant]
     Dosage: 40 MG
     Route: 048

REACTIONS (2)
  - Pulmonary haemorrhage [Recovered/Resolved]
  - Gastrointestinal haemorrhage [Unknown]
